FAERS Safety Report 5586022-6 (Version None)
Quarter: 2007Q4

REPORT INFORMATION
  Report Type: 
  Country: None (occurrence: None)
  Receive Date: 20071205
  Receipt Date: 20070315
  Transmission Date: 20080405
  Serious: Yes (Other)
  Sender: FDA-Public Use
  Company Number: HQWYE966116MAR07

PATIENT
  Age: 26 Year
  Sex: Female
  Weight: 50.85 kg

DRUGS (2)
  1. EFFEXOR XR [Suspect]
     Indication: DEPRESSION
     Dosage: TAPERED SLOWLY DOSE AND FREQUENCY, ORAL ; 300 MG 1X PER 1 DAY, ORAL
     Route: 048
     Dates: start: 19940101, end: 20070201
  2. EFFEXOR XR [Suspect]
     Indication: DEPRESSION
     Dosage: TAPERED SLOWLY DOSE AND FREQUENCY, ORAL ; 300 MG 1X PER 1 DAY, ORAL
     Route: 048
     Dates: start: 20070201, end: 20070301

REACTIONS (6)
  - ANXIETY [None]
  - DRUG WITHDRAWAL SYNDROME [None]
  - EXAGGERATED STARTLE RESPONSE [None]
  - INSOMNIA [None]
  - SUICIDAL IDEATION [None]
  - TREMOR [None]
